FAERS Safety Report 24049413 (Version 1)
Quarter: 2024Q3

REPORT INFORMATION
  Report Type: Spontaneous
  Country: US (occurrence: US)
  Receive Date: 20240704
  Receipt Date: 20240704
  Transmission Date: 20241017
  Serious: No
  Sender: ALKEM
  Company Number: None

PATIENT
  Age: 26 Year
  Sex: Female

DRUGS (2)
  1. IBUPROFEN [Suspect]
     Active Substance: IBUPROFEN
     Indication: Post-traumatic headache
     Dosage: UNK
     Route: 065
  2. ACETAMINOPHEN, ASPIRIN AND CAFFEINE [Suspect]
     Active Substance: ACETAMINOPHEN\ASPIRIN\CAFFEINE
     Indication: Post-traumatic headache
     Dosage: UNK
     Route: 065

REACTIONS (1)
  - Medication overuse headache [Unknown]
